FAERS Safety Report 7737283-6 (Version None)
Quarter: 2011Q3

REPORT INFORMATION
  Report Type: 
  Country: None (occurrence: None)
  Receive Date: 20110908
  Receipt Date: 20110831
  Transmission Date: 20111222
  Serious: Yes (Hospitalization)
  Sender: FDA-Public Use
  Company Number: FR-MPIJNJ-2011-03908

PATIENT

DRUGS (4)
  1. DEXAMETHASONE [Suspect]
     Indication: MULTIPLE MYELOMA
     Dosage: 20 MG/M2, UNK
     Route: 048
     Dates: start: 20110601, end: 20110720
  2. BENDAMUSTINE [Suspect]
     Indication: MULTIPLE MYELOMA
     Dosage: 70 MG/M2, UNK
     Route: 042
     Dates: start: 20110601, end: 20110706
  3. LEVEMIR [Concomitant]
  4. VELCADE [Suspect]
     Indication: MULTIPLE MYELOMA
     Dosage: 1.3 MG/M2, UNK
     Route: 042
     Dates: start: 20110601, end: 20110720

REACTIONS (2)
  - LUNG DISORDER [None]
  - CLOSTRIDIUM DIFFICILE COLITIS [None]
